FAERS Safety Report 8823862 (Version 1)
Quarter: 2012Q4

REPORT INFORMATION
  Report Type: 
  Country: US (occurrence: US)
  Receive Date: 20121003
  Receipt Date: 20121003
  Transmission Date: 20130627
  Serious: No
  Sender: FDA-Public Use
  Company Number: US-009507513-1210USA000765

PATIENT
  Sex: Female

DRUGS (2)
  1. SINGULAIR [Suspect]
     Dosage: UNK
     Route: 048
  2. ALLEGRA [Suspect]
     Dosage: 180 mg, UNK
     Route: 048

REACTIONS (2)
  - Pain in extremity [Unknown]
  - Headache [Unknown]
